FAERS Safety Report 17488331 (Version 1)
Quarter: 2020Q1

REPORT INFORMATION
  Report Type: Spontaneous
  Country: US (occurrence: US)
  Receive Date: 20200302
  Receipt Date: 20200302
  Transmission Date: 20200409
  Serious: Yes (Hospitalization)
  Sender: FDA-Public Use
  Company Number: None

PATIENT
  Age: 50 Year
  Sex: Female

DRUGS (14)
  1. HYDROXYUREA. [Concomitant]
     Active Substance: HYDROXYUREA
  2. IRON [Concomitant]
     Active Substance: IRON
  3. ZOFRAN [Concomitant]
     Active Substance: ONDANSETRON HYDROCHLORIDE
  4. MULTIPLE VIT [Concomitant]
  5. VITAMIN D [Concomitant]
     Active Substance: VITAMIN D NOS
  6. POTASSIUM [Concomitant]
     Active Substance: POTASSIUM
  7. PROTONIX [Concomitant]
     Active Substance: PANTOPRAZOLE SODIUM
  8. VIBERZI [Concomitant]
     Active Substance: ELUXADOLINE
  9. XANAX [Concomitant]
     Active Substance: ALPRAZOLAM
  10. OCTREOTIDE. [Suspect]
     Active Substance: OCTREOTIDE
     Indication: CARCINOID TUMOUR OF THE LIVER
     Dosage: ?          OTHER FREQUENCY:UNK;OTHER ROUTE:UNK?
  11. DEXAMETHASON [Concomitant]
     Active Substance: DEXAMETHASONE
  12. MORPHINE [Concomitant]
     Active Substance: MORPHINE
  13. OXYBUTYNIN. [Concomitant]
     Active Substance: OXYBUTYNIN CHLORIDE
  14. WELLBUTRIN [Concomitant]
     Active Substance: BUPROPION HYDROCHLORIDE

REACTIONS (2)
  - Hospitalisation [None]
  - Therapy cessation [None]

NARRATIVE: CASE EVENT DATE: 20200228
